FAERS Safety Report 6600091-3 (Version None)
Quarter: 2010Q1

REPORT INFORMATION
  Report Type: 
  Country: None (occurrence: None)
  Receive Date: 20100224
  Receipt Date: 20100212
  Transmission Date: 20100710
  Serious: Yes (Other)
  Sender: FDA-Public Use
  Company Number: PHHY2010JP09445

PATIENT
  Sex: Female

DRUGS (2)
  1. ICL670A ICL+DISTAB [Suspect]
     Indication: THALASSAEMIA ALPHA
     Dosage: 1000 MG DAILY
     Route: 048
     Dates: start: 20080918, end: 20081030
  2. URSO 250 [Concomitant]
     Dosage: 300 MG, UNK
     Route: 048
     Dates: start: 20080117

REACTIONS (3)
  - HEPATIC FUNCTION ABNORMAL [None]
  - NEOPLASM MALIGNANT [None]
  - RENAL IMPAIRMENT [None]
